FAERS Safety Report 11910944 (Version 1)
Quarter: 2016Q1

REPORT INFORMATION
  Report Type: Spontaneous
  Country: US (occurrence: None)
  Receive Date: 20160111
  Receipt Date: 20160111
  Transmission Date: 20160526
  Serious: No
  Sender: FDA-Public Use
  Company Number: None

PATIENT
  Age: 50 Year
  Sex: Female

DRUGS (4)
  1. JANUVIA [Concomitant]
     Active Substance: SITAGLIPTIN PHOSPHATE
  2. GLIMIPERIDE [Suspect]
     Active Substance: GLIMEPIRIDE
  3. TOUJEO [Concomitant]
     Active Substance: INSULIN GLARGINE
  4. METFORMIN [Suspect]
     Active Substance: METFORMIN HYDROCHLORIDE

REACTIONS (7)
  - Feeling abnormal [None]
  - Inappropriate schedule of drug administration [None]
  - Blood glucose abnormal [None]
  - Decreased appetite [None]
  - Arthralgia [None]
  - Drug ineffective [None]
  - Headache [None]
